FAERS Safety Report 4844685-4 (Version None)
Quarter: 2005Q4

REPORT INFORMATION
  Report Type: 
  Country: None (occurrence: None)
  Receive Date: 20051129
  Receipt Date: 20051116
  Transmission Date: 20060501
  Serious: Yes (Hospitalization)
  Sender: FDA-Public Use
  Company Number: B0400648A

PATIENT
  Age: 10 Year
  Sex: Male

DRUGS (9)
  1. AMOXICILLIN + CLAVULANATE POTASSIUM [Suspect]
     Dosage: 600 MG/ TWICE PER DAY/ UNKNOWN
  2. ANTIHISTAMINE [Concomitant]
  3. PREDNISONE [Concomitant]
  4. MEBENDAZOLE [Concomitant]
  5. AZITHROMYCIN [Concomitant]
  6. SALBUTAMOL SULPHATE [Concomitant]
  7. CLONIDINE [Concomitant]
  8. CITALOPRAM HYDROBROMIDE [Concomitant]
  9. RISPERIDONE [Concomitant]

REACTIONS (10)
  - BLOOD CHOLESTEROL INCREASED [None]
  - BLOOD TRIGLYCERIDES INCREASED [None]
  - CHOLESTASIS [None]
  - GALLBLADDER DISORDER [None]
  - HEPATIC FIBROSIS [None]
  - HEPATITIS [None]
  - MYCOPLASMA SEROLOGY POSITIVE [None]
  - PANCREATITIS [None]
  - UPPER RESPIRATORY TRACT INFECTION [None]
  - VANISHING BILE DUCT SYNDROME [None]
